FAERS Safety Report 8445008-4 (Version None)
Quarter: 2012Q2

REPORT INFORMATION
  Report Type: 
  Country: None (occurrence: None)
  Receive Date: 20120618
  Receipt Date: 20120608
  Transmission Date: 20120825
  Serious: Yes (Hospitalization, Other)
  Sender: FDA-Public Use
  Company Number: BE-JNJFOC-20120511785

PATIENT
  Age: 61 Year
  Sex: Male
  Weight: 80 kg

DRUGS (7)
  1. REMICADE [Suspect]
     Route: 042
     Dates: start: 20110705
  2. REMICADE [Suspect]
     Route: 042
     Dates: start: 20111025
  3. REMICADE [Suspect]
     Route: 042
     Dates: start: 20110201
  4. REMICADE [Suspect]
     Route: 042
     Dates: start: 20110118
  5. REMICADE [Suspect]
     Route: 042
     Dates: start: 20110301
  6. REMICADE [Suspect]
     Route: 042
     Dates: start: 20110830
  7. REMICADE [Suspect]
     Indication: COLITIS ULCERATIVE
     Route: 042
     Dates: start: 20110426

REACTIONS (1)
  - BILE DUCT CANCER [None]
